FAERS Safety Report 15631284 (Version 5)
Quarter: 2019Q1

REPORT INFORMATION
  Report Type: Spontaneous
  Country: US (occurrence: US)
  Receive Date: 20181119
  Receipt Date: 20190128
  Transmission Date: 20190417
  Serious: Yes (Other)
  Sender: FDA-Public Use
  Company Number: US-JNJFOC-20181031964

PATIENT
  Age: 46 Year
  Sex: Female
  Weight: 74.84 kg

DRUGS (12)
  1. DURAGESIC [Suspect]
     Active Substance: FENTANYL
     Indication: PAIN
     Route: 062
     Dates: start: 2009
  2. DURAGESIC [Suspect]
     Active Substance: FENTANYL
     Indication: PAIN
     Dosage: EITHER IN 2006 OR 2007
     Route: 062
     Dates: start: 2007
  3. PREDNISONE. [Concomitant]
     Active Substance: PREDNISONE
     Indication: SINUS OPERATION
     Route: 048
  4. PREDNISONE. [Concomitant]
     Active Substance: PREDNISONE
     Indication: SINUS OPERATION
     Route: 048
  5. PREDNISONE. [Concomitant]
     Active Substance: PREDNISONE
     Indication: SINUS OPERATION
     Route: 048
  6. VITAMIN D3 [Concomitant]
     Active Substance: CHOLECALCIFEROL
     Route: 065
  7. DURAGESIC [Suspect]
     Active Substance: FENTANYL
     Indication: PAIN
     Dosage: EITHER IN 2006 OR 2007
     Route: 062
     Dates: start: 2007
  8. PREDNISONE. [Concomitant]
     Active Substance: PREDNISONE
     Indication: EYE DISCHARGE
     Route: 048
  9. PREDNISONE. [Concomitant]
     Active Substance: PREDNISONE
     Indication: EYE DISCHARGE
     Route: 048
  10. PREDNISONE. [Concomitant]
     Active Substance: PREDNISONE
     Indication: EYE DISCHARGE
     Route: 048
  11. ACYCLOVIR. [Concomitant]
     Active Substance: ACYCLOVIR
     Route: 065
  12. FENTORA [Concomitant]
     Active Substance: FENTANYL CITRATE
     Indication: BREAKTHROUGH PAIN
     Dosage: EVERY 8 HOURS PNR (AS REQUIRED)
     Route: 065
     Dates: start: 2010

REACTIONS (17)
  - Blood pressure increased [Unknown]
  - Amnesia [Unknown]
  - Anxiety [Not Recovered/Not Resolved]
  - Cataract [Unknown]
  - Application site scar [Unknown]
  - Product quality issue [Unknown]
  - Underdose [Unknown]
  - Product adhesion issue [Not Recovered/Not Resolved]
  - Retinal tear [Unknown]
  - Nausea [Unknown]
  - Balance disorder [Unknown]
  - Diarrhoea [Unknown]
  - Hyperhidrosis [Unknown]
  - Agitation [Not Recovered/Not Resolved]
  - Frustration tolerance decreased [Not Recovered/Not Resolved]
  - Blindness unilateral [Unknown]
  - Breakthrough pain [Unknown]

NARRATIVE: CASE EVENT DATE: 2018
